FAERS Safety Report 23109538 (Version 1)
Quarter: 2023Q4

REPORT INFORMATION
  Report Type: Spontaneous
  Country: US (occurrence: US)
  Receive Date: 20231026
  Receipt Date: 20231026
  Transmission Date: 20240109
  Serious: Yes (Other)
  Sender: FDA-Public Use
  Company Number: US-SANOFI-01813477

PATIENT
  Age: 51 Year
  Sex: Male

DRUGS (2)
  1. DUPIXENT [Suspect]
     Active Substance: DUPILUMAB
     Indication: Dermatitis atopic
     Dosage: 300 MG
     Route: 065
     Dates: start: 202212
  2. LANTUS [Concomitant]
     Active Substance: INSULIN GLARGINE
     Indication: Diabetes mellitus
     Dosage: TWICE A DAY
     Route: 065

REACTIONS (3)
  - Neoplasm [Unknown]
  - Accidental exposure to product [Unknown]
  - Exposure via skin contact [Unknown]
